FAERS Safety Report 6067003-5 (Version None)
Quarter: 2009Q1

REPORT INFORMATION
  Report Type: 
  Country: None (occurrence: None)
  Receive Date: 20090205
  Receipt Date: 20090129
  Transmission Date: 20090719
  Serious: Yes (Other)
  Sender: FDA-Public Use
  Company Number: US-JNJFOC-20090200343

PATIENT
  Sex: Female
  Weight: 72.58 kg

DRUGS (10)
  1. FENTANYL TRANSDERMAL SYSTEM [Suspect]
     Indication: FIBROMYALGIA
     Route: 062
  2. FENTANYL TRANSDERMAL SYSTEM [Suspect]
     Indication: ABDOMINAL PAIN
     Route: 062
  3. FENTANYL TRANSDERMAL SYSTEM [Suspect]
     Indication: FIBROMYALGIA
     Route: 062
  4. FENTANYL TRANSDERMAL SYSTEM [Suspect]
     Indication: ABDOMINAL PAIN
     Route: 062
  5. CYMBALTA [Concomitant]
     Indication: DEPRESSION
     Route: 048
  6. NORCO [Concomitant]
     Indication: BREAKTHROUGH PAIN
     Dosage: AS NEEDED
     Route: 048
  7. FLEXERIL [Concomitant]
     Indication: MYALGIA
     Dosage: AS NEEDED
     Route: 048
  8. AMBIEN CR [Concomitant]
     Indication: SLEEP DISORDER
     Dosage: AT BED TIME
     Route: 048
  9. ATIVAN [Concomitant]
     Indication: STRESS
     Dosage: AS NEEDED
     Route: 048
  10. BENTYL [Concomitant]
     Indication: IRRITABLE BOWEL SYNDROME
     Dosage: AS NEEDED
     Route: 048

REACTIONS (9)
  - ABDOMINAL PAIN UPPER [None]
  - APPLICATION SITE PRURITUS [None]
  - APPLICATION SITE RASH [None]
  - APPLICATION SITE SCAB [None]
  - BLADDER DISORDER [None]
  - DRUG ADMINISTERED AT INAPPROPRIATE SITE [None]
  - FIBROMYALGIA [None]
  - SOMNOLENCE [None]
  - WRONG TECHNIQUE IN DRUG USAGE PROCESS [None]
